FAERS Safety Report 4355318-8 (Version None)
Quarter: 2004Q2

REPORT INFORMATION
  Report Type: 
  Country: None (occurrence: None)
  Receive Date: 20040510
  Receipt Date: 20040430
  Transmission Date: 20050107
  Serious: Yes (Hospitalization)
  Sender: FDA-Public Use
  Company Number: CH-ROCHE-366248

PATIENT
  Age: 83 Year
  Sex: Female
  Weight: 71 kg

DRUGS (16)
  1. TORSEMIDE [Suspect]
     Indication: OEDEMA
     Dosage: STARTED YEARS AGO.
     Route: 048
     Dates: end: 20040416
  2. PROXEN [Interacting]
     Indication: PAIN
     Route: 048
     Dates: end: 20040415
  3. COLCHICINE [Interacting]
     Indication: GOUT
     Route: 048
     Dates: start: 20040315, end: 20040415
  4. COLCHICINE [Interacting]
     Route: 048
     Dates: start: 20040115, end: 20040315
  5. COLCHICINE [Interacting]
     Route: 048
     Dates: start: 20040416
  6. IMPORTAL [Interacting]
     Indication: DRUG USE FOR UNKNOWN INDICATION
     Dosage: STARTED MONTHS AGO.
     Route: 048
     Dates: end: 20040415
  7. CO-RENITEN [Interacting]
     Indication: HYPERTENSION
     Dosage: STARTED MONTHS AGO.
     Route: 048
     Dates: end: 20040416
  8. SINTROM MITIS [Concomitant]
     Indication: PULMONARY EMBOLISM
     Route: 048
     Dates: start: 20020415, end: 20040416
  9. PREDNISONE [Concomitant]
     Indication: POLYMYALGIA RHEUMATICA
     Dosage: INCREASED ON 19 APR 2004.
     Route: 048
  10. DURAGESIC [Concomitant]
     Indication: PAIN
     Dosage: STARTED MONTHS AGO.
     Route: 062
  11. DOXEPIN HCL [Concomitant]
     Dosage: STARTED MONTHS AGO.
     Route: 048
     Dates: end: 20040416
  12. HALCION [Concomitant]
     Indication: SLEEP DISORDER
     Dosage: STARTED YEARS AGO.
     Route: 048
     Dates: end: 20040416
  13. CALCIMAGON-D3 [Concomitant]
     Indication: OSTEOPOROSIS
     Dosage: 1 DOSE FORM = 500 MG OF CALCIUM CARBONATE AND 400 IU OF CHOLECALCIFEROL. STARTED YEARS AGO.
     Route: 048
  14. OMEPRAZOLE [Concomitant]
     Dosage: STARTED YEARS AGO.
     Route: 048
  15. NORVASC [Concomitant]
     Indication: HYPERTENSION
     Dosage: STARTED MONTHS AGO.
     Route: 048
     Dates: end: 20040416
  16. DAFALGAN [Concomitant]
     Indication: PAIN
     Dosage: STARTED YEARS AGO.
     Route: 048

REACTIONS (6)
  - ARTHRALGIA [None]
  - DECREASED APPETITE [None]
  - DIARRHOEA [None]
  - DRUG INTERACTION [None]
  - GENERAL PHYSICAL HEALTH DETERIORATION [None]
  - RENAL FAILURE [None]
